FAERS Safety Report 22378130 (Version 1)
Quarter: 2023Q2

REPORT INFORMATION
  Report Type: Spontaneous
  Country: US (occurrence: US)
  Receive Date: 20230529
  Receipt Date: 20230529
  Transmission Date: 20230722
  Serious: No
  Sender: FDA-Public Use
  Company Number: US-SA-SAC20230525000882

PATIENT
  Age: 44 Year
  Sex: Female
  Weight: 62.5 kg

DRUGS (1)
  1. AUBAGIO [Suspect]
     Active Substance: TERIFLUNOMIDE
     Indication: Multiple sclerosis
     Dosage: 7 MG, QOD
     Route: 048
     Dates: start: 20190107

REACTIONS (2)
  - Tremor [Unknown]
  - Inappropriate schedule of product administration [Unknown]
